FAERS Safety Report 6274426-8 (Version None)
Quarter: 2009Q3

REPORT INFORMATION
  Report Type: 
  Country: None (occurrence: None)
  Receive Date: 20090716
  Receipt Date: 20090702
  Transmission Date: 20100115
  Serious: Yes (Other)
  Sender: FDA-Public Use
  Company Number: HECT-1000047

PATIENT
  Age: 54 Year
  Sex: Male
  Weight: 73.5 kg

DRUGS (14)
  1. HECTOROL [Suspect]
     Indication: HYPERPARATHYROIDISM SECONDARY
     Dosage: INTRAVENOUS
     Route: 042
     Dates: start: 20080913, end: 20090310
  2. SENSIPAR [Concomitant]
  3. LISINOPRIL (LISINOPRIL DIHYDRATE) [Concomitant]
  4. LOPRESSOR [Concomitant]
  5. HYDRALAZINE HCL [Concomitant]
  6. PHOSLO [Concomitant]
  7. COREG [Concomitant]
  8. FOLIC ACID [Concomitant]
  9. STRESSTABS (VITAMIN NOS) [Concomitant]
  10. GABAPENTIN (GABAPENTIN) CAPSULE [Concomitant]
  11. VIAGRA [Concomitant]
  12. PROTONIX [Concomitant]
  13. OXYCODONE (OXYCODONE) TABLET [Concomitant]
  14. EPOGEN [Concomitant]

REACTIONS (3)
  - BLOOD PRESSURE INCREASED [None]
  - REFUSAL OF TREATMENT BY PATIENT [None]
  - RESPIRATORY DISTRESS [None]
